FAERS Safety Report 7288482-1 (Version None)
Quarter: 2011Q1

REPORT INFORMATION
  Report Type: 
  Country: None (occurrence: None)
  Receive Date: 20110211
  Receipt Date: 20110207
  Transmission Date: 20110831
  Serious: Yes (Other)
  Sender: FDA-Public Use
  Company Number: B0698957A

PATIENT
  Age: 38 Year
  Sex: Female

DRUGS (1)
  1. AVANDIA [Suspect]
     Dosage: 4MG PER DAY
     Route: 048
     Dates: start: 20020826, end: 20050915

REACTIONS (4)
  - FLUID RETENTION [None]
  - PAIN [None]
  - CARDIOMYOPATHY [None]
  - MYOCARDIAL ISCHAEMIA [None]
